FAERS Safety Report 23807836 (Version 8)
Quarter: 2025Q1

REPORT INFORMATION
  Report Type: Report from Study
  Country: US (occurrence: US)
  Receive Date: 20240502
  Receipt Date: 20250213
  Transmission Date: 20250409
  Serious: Yes (Hospitalization, Other)
  Sender: TAKEDA
  Company Number: US-TAKEDA-2024TUS041254

PATIENT
  Age: 47 Year
  Sex: Male
  Weight: 65 kg

DRUGS (16)
  1. TEDUGLUTIDE [Suspect]
     Active Substance: TEDUGLUTIDE
     Indication: Short-bowel syndrome
     Dosage: UNK UNK, QD
     Dates: start: 20240329
  2. TEDUGLUTIDE [Suspect]
     Active Substance: TEDUGLUTIDE
     Indication: Intestinal ischaemia
     Dosage: 0.32 MILLILITER, QD
     Dates: start: 202404
  3. TEDUGLUTIDE [Suspect]
     Active Substance: TEDUGLUTIDE
  4. TEDUGLUTIDE [Suspect]
     Active Substance: TEDUGLUTIDE
  5. TPN [Concomitant]
     Active Substance: AMINO ACIDS\DEXTROSE\ELECTROLYTES NOS\SOYBEAN OIL
  6. ASPIRIN [Concomitant]
     Active Substance: ASPIRIN
  7. BUSPIRONE [Concomitant]
     Active Substance: BUSPIRONE HYDROCHLORIDE
  8. CARVEDILOL [Concomitant]
     Active Substance: CARVEDILOL
  9. COLLAGENASE SANTYL [Concomitant]
     Active Substance: COLLAGENASE CLOSTRIDIUM HISTOLYTICUM
     Route: 061
  10. VITAMIN D2 [Concomitant]
     Active Substance: ERGOCALCIFEROL
  11. GABAPENTIN [Concomitant]
     Active Substance: GABAPENTIN
  12. HEPARIN SODIUM, PORCINE [Concomitant]
     Active Substance: HEPARIN SODIUM
  13. LOPERAMIDE [Concomitant]
     Active Substance: LOPERAMIDE
  14. ONDANSETRON [Concomitant]
     Active Substance: ONDANSETRON
  15. SODIUM CHLORIDE [Concomitant]
     Active Substance: SODIUM CHLORIDE
  16. ZINC OXIDE [Concomitant]
     Active Substance: ZINC OXIDE

REACTIONS (17)
  - Urinary retention [Unknown]
  - Hernia [Unknown]
  - Vascular device infection [Unknown]
  - Injection site reaction [Unknown]
  - Vomiting [Unknown]
  - Abdominal pain [Unknown]
  - Weight decreased [Unknown]
  - Frequent bowel movements [Unknown]
  - Product dose omission issue [Unknown]
  - Dyspepsia [Unknown]
  - Abdominal hernia [Unknown]
  - Diarrhoea [Not Recovered/Not Resolved]
  - Excessive granulation tissue [Recovered/Resolved]
  - Dysuria [Unknown]
  - Anaemia [Unknown]
  - Headache [Unknown]
  - Nausea [Unknown]

NARRATIVE: CASE EVENT DATE: 20240808
